FAERS Safety Report 7244020-0 (Version None)
Quarter: 2011Q1

REPORT INFORMATION
  Report Type: 
  Country: None (occurrence: None)
  Receive Date: 20110125
  Receipt Date: 20110119
  Transmission Date: 20110831
  Serious: Yes (Hospitalization)
  Sender: FDA-Public Use
  Company Number: FR-MERCK-1101FRA00109

PATIENT
  Age: 78 Year
  Sex: Female

DRUGS (1)
  1. FOSAMAX PLUS D [Suspect]
     Indication: OSTEOPOROSIS
     Route: 048
     Dates: start: 20081108

REACTIONS (6)
  - OESOPHAGITIS [None]
  - MOUTH ULCERATION [None]
  - DYSPEPSIA [None]
  - MEDICATION ERROR [None]
  - DRUG ADMINISTRATION ERROR [None]
  - PHARYNGEAL ULCERATION [None]
